FAERS Safety Report 9925792 (Version 2)
Quarter: 2014Q1

REPORT INFORMATION
  Report Type: Spontaneous
  Country: US (occurrence: US)
  Receive Date: 20140226
  Receipt Date: 20140228
  Transmission Date: 20141002
  Serious: Yes (Hospitalization, Other)
  Sender: FDA-Public Use
  Company Number: US-BAXTER-2014BAX008824

PATIENT
  Sex: Male

DRUGS (4)
  1. DIANEAL LOW CALCIUM [Suspect]
     Indication: PERITONEAL DIALYSIS
     Route: 033
  2. DIANEAL LOW CALCIUM [Suspect]
     Indication: PERITONEAL DIALYSIS
     Route: 033
  3. DIANEAL LOW CALCIUM [Suspect]
     Indication: PERITONEAL DIALYSIS
     Route: 033
  4. INSULIN [Concomitant]
     Indication: DIABETES MELLITUS

REACTIONS (5)
  - Depression [Not Recovered/Not Resolved]
  - Blood glucose decreased [Unknown]
  - Blood glucose increased [Recovered/Resolved]
  - Hypotension [Unknown]
  - Hypertension [Recovered/Resolved]
